FAERS Safety Report 4381576-X (Version None)
Quarter: 2004Q2

REPORT INFORMATION
  Report Type: 
  Country: None (occurrence: None)
  Receive Date: 20040615
  Receipt Date: 20040608
  Transmission Date: 20050107
  Serious: Yes (Other)
  Sender: FDA-Public Use
  Company Number: 2004214584US

PATIENT
  Age: 65 Year
  Sex: Female
  Weight: 75.3 kg

DRUGS (15)
  1. ZYVOX [Suspect]
     Indication: STAPHYLOCOCCAL INFECTION
     Dosage: BID
     Dates: start: 20020701, end: 20031201
  2. AGRYLIN [Concomitant]
  3. IRON [Concomitant]
  4. NEURONTIN [Concomitant]
  5. LORAZEPAM [Concomitant]
  6. POTASSIUM [Concomitant]
  7. LASIX [Concomitant]
  8. PRAVACHOL [Concomitant]
  9. LISINOPRIL [Concomitant]
  10. LIDOCAINE [Concomitant]
  11. PREVACID [Concomitant]
  12. SEPTRA [Concomitant]
  13. CALCIUM [Concomitant]
  14. PROCRIT (ERYTHROPOIETIN) [Concomitant]
  15. FOSAMAX [Concomitant]

REACTIONS (10)
  - ANAEMIA [None]
  - ATAXIA [None]
  - BLINDNESS [None]
  - IMPAIRED DRIVING ABILITY [None]
  - NEUROPATHY PERIPHERAL [None]
  - OPTIC NEURITIS [None]
  - PURULENCE [None]
  - READING DISORDER [None]
  - THROMBOCYTOPENIA [None]
  - WOUND DEHISCENCE [None]
